FAERS Safety Report 18687681 (Version 1)
Quarter: 2020Q4

REPORT INFORMATION
  Report Type: Report from Study
  Country: US (occurrence: US)
  Receive Date: 20201231
  Receipt Date: 20201231
  Transmission Date: 20210114
  Serious: Yes (Other)
  Sender: FDA-Public Use
  Company Number: NVSC2020US338704

PATIENT
  Age: 68 Year
  Sex: Female

DRUGS (2)
  1. ENTRESTO [Suspect]
     Active Substance: SACUBITRIL\VALSARTAN
     Dosage: 100 MG, QD
     Route: 048
  2. ENTRESTO [Suspect]
     Active Substance: SACUBITRIL\VALSARTAN
     Indication: CARDIAC OUTPUT DECREASED
     Dosage: 100 MG, BID (49/51MG)
     Route: 048
     Dates: start: 202002

REACTIONS (16)
  - Tachyphrenia [Not Recovered/Not Resolved]
  - Suicidal ideation [Recovering/Resolving]
  - Depressed mood [Recovering/Resolving]
  - Asthenia [Recovering/Resolving]
  - Bipolar disorder [Recovering/Resolving]
  - Discouragement [Not Recovered/Not Resolved]
  - Therapeutic response unexpected [Recovering/Resolving]
  - Inappropriate schedule of product administration [Not Recovered/Not Resolved]
  - Nausea [Not Recovered/Not Resolved]
  - Product dose omission issue [Not Recovered/Not Resolved]
  - Product use in unapproved indication [Unknown]
  - Depression [Not Recovered/Not Resolved]
  - Crying [Recovering/Resolving]
  - Mood swings [Not Recovered/Not Resolved]
  - Affect lability [Not Recovered/Not Resolved]
  - Abdominal discomfort [Not Recovered/Not Resolved]

NARRATIVE: CASE EVENT DATE: 202002
